FAERS Safety Report 8088427-0 (Version None)
Quarter: 2012Q1

REPORT INFORMATION
  Report Type: 
  Country: None (occurrence: None)
  Receive Date: 20120128
  Receipt Date: 20110601
  Transmission Date: 20120608
  Serious: No
  Sender: FDA-Public Use
  Company Number: US-ABBOTT-11P-163-0730263-00

PATIENT
  Sex: Female
  Weight: 158.9 kg

DRUGS (3)
  1. HUMIRA [Suspect]
     Indication: PSORIASIS
     Route: 058
     Dates: start: 20110426
  2. VITAMIN TAB [Concomitant]
     Indication: PRODUCT USED FOR UNKNOWN INDICATION
  3. ALBUTEROL [Concomitant]
     Indication: ASTHMA

REACTIONS (7)
  - OROPHARYNGEAL PAIN [None]
  - UPPER-AIRWAY COUGH SYNDROME [None]
  - FATIGUE [None]
  - INJECTION SITE ERYTHEMA [None]
  - INJECTION SITE PRURITUS [None]
  - BRADYPHRENIA [None]
  - COUGH [None]
